FAERS Safety Report 15982322 (Version 1)
Quarter: 2019Q1

REPORT INFORMATION
  Report Type: Spontaneous
  Country: JP (occurrence: JP)
  Receive Date: 20190219
  Receipt Date: 20190219
  Transmission Date: 20190418
  Serious: Yes (Other)
  Sender: FDA-Public Use
  Company Number: JP-PFIZER INC-2019060758

PATIENT

DRUGS (2)
  1. SELARA 25MG [Suspect]
     Active Substance: EPLERENONE
     Dosage: 25 MG, UNK
  2. SELARA 25MG [Suspect]
     Active Substance: EPLERENONE
     Indication: CARDIAC FAILURE CHRONIC
     Dosage: 25 MG, UNK

REACTIONS (3)
  - Blood potassium increased [Unknown]
  - Creatinine renal clearance decreased [Unknown]
  - Contraindicated product administered [Unknown]
